FAERS Safety Report 5657757-1 (Version None)
Quarter: 2008Q1

REPORT INFORMATION
  Report Type: 
  Country: None (occurrence: None)
  Receive Date: 20080305
  Receipt Date: 20080220
  Transmission Date: 20080703
  Serious: Yes (Other)
  Sender: FDA-Public Use
  Company Number: OSCN-NO-0802L-0077

PATIENT
  Age: 69 Year
  Sex: Female

DRUGS (1)
  1. OMNISCAN [Suspect]
     Indication: RENAL ANEURYSM
     Dosage: SINGLE DOSE,
     Dates: start: 20070101, end: 20070101

REACTIONS (1)
  - NEPHROGENIC SYSTEMIC FIBROSIS [None]
